FAERS Safety Report 15624855 (Version 6)
Quarter: 2023Q4

REPORT INFORMATION
  Report Type: Report from Study
  Country: FR (occurrence: FR)
  Receive Date: 20181116
  Receipt Date: 20231103
  Transmission Date: 20240110
  Serious: Yes (Life-Threatening, Hospitalization, Other)
  Sender: FDA-Public Use
  Company Number: None

PATIENT
  Age: 62 Year
  Sex: Male
  Weight: 112 kg

DRUGS (14)
  1. ATORVASTATIN [Suspect]
     Active Substance: ATORVASTATIN
     Indication: Product used for unknown indication
     Dosage: 400 MILLIGRAM, TOTAL
     Route: 048
  2. BISOPROLOL [Suspect]
     Active Substance: BISOPROLOL\BISOPROLOL FUMARATE
     Indication: Product used for unknown indication
     Dosage: 520 MILLIGRAM IN TOTAL, (500 MG (50 TABLETS OF 10 MG))
     Route: 048
     Dates: start: 20151222, end: 20151222
  3. BISOPROLOL [Suspect]
     Active Substance: BISOPROLOL\BISOPROLOL FUMARATE
     Dosage: 502 MILLIGRAM
     Route: 048
  4. HYDROCHLOROTHIAZIDE [Suspect]
     Active Substance: HYDROCHLOROTHIAZIDE
     Indication: Product used for unknown indication
     Dosage: 750 MILLIGRAM, TOTAL
     Route: 048
  5. ACETAMINOPHEN [Suspect]
     Active Substance: ACETAMINOPHEN
     Indication: Product used for unknown indication
     Dosage: 4 GRAM (4 G, SINGLE),TOTAL
     Route: 048
     Dates: start: 20151222, end: 20151222
  6. ACETAMINOPHEN\ASPIRIN\CAFFEINE [Suspect]
     Active Substance: ACETAMINOPHEN\ASPIRIN\CAFFEINE
     Indication: Product used for unknown indication
     Dosage: 4 GRAM, TOTAL
     Route: 048
  7. AMLODIPINE [Suspect]
     Active Substance: AMLODIPINE BESYLATE
     Indication: Product used for unknown indication
     Dosage: 100 MILLIGRAM IN TOTAL 100 MG (10 TABLETS OF 10 MG)
     Route: 048
     Dates: start: 20151222, end: 20151222
  8. APIXABAN [Suspect]
     Active Substance: APIXABAN
     Indication: Anticoagulant therapy
     Dosage: 230 MILLIGRAM IN TOTAL 200 MG (40 TABLETS OF 5 MG)
     Route: 048
     Dates: start: 20151222, end: 20151222
  9. APIXABAN [Suspect]
     Active Substance: APIXABAN
     Indication: Atrial fibrillation
  10. CLOMIPRAMINE [Suspect]
     Active Substance: CLOMIPRAMINE
     Indication: Product used for unknown indication
     Dosage: 600 MG IN TOTAL(24 TABLETS OF 25 MG)
     Route: 048
     Dates: start: 20151222, end: 20151222
  11. ESIDREX [Suspect]
     Active Substance: HYDROCHLOROTHIAZIDE
     Indication: Product used for unknown indication
     Dosage: 750 MILLIGRAM IN  TOTAL 750 MG (30 TABLETS OF 25 MG)
     Route: 048
     Dates: start: 20151222, end: 20151222
  12. POTASSIUM CHLORIDE [Suspect]
     Active Substance: POTASSIUM CHLORIDE
     Indication: Product used for unknown indication
     Dosage: 20 GRAM IN TOTAL 20000 MG (20 TABLETS OF 1000 MG)
     Route: 048
     Dates: start: 20151222, end: 20151222
  13. POTASSIUM [Suspect]
     Active Substance: POTASSIUM
     Indication: Product used for unknown indication
     Dosage: 20 GRAM (TOTAL)
     Route: 048
  14. TAHOR [Suspect]
     Active Substance: ATORVASTATIN CALCIUM
     Indication: Product used for unknown indication
     Dosage: 400 MILLIGRAM IN TOTAL 400 MG (20 TABLETS OF 20 MG)
     Route: 048
     Dates: start: 20151222, end: 20151222

REACTIONS (10)
  - Shock [Recovered/Resolved]
  - Hypotension [Recovered/Resolved]
  - Cardiogenic shock [Recovered/Resolved]
  - Hypokalaemia [Recovered/Resolved]
  - Hypovolaemic shock [Unknown]
  - Drug level increased [Recovered/Resolved]
  - Poisoning deliberate [Recovered/Resolved]
  - Toxicity to various agents [Recovered/Resolved]
  - Intentional overdose [Recovered/Resolved]
  - Drug interaction [Unknown]

NARRATIVE: CASE EVENT DATE: 20151222
